FAERS Safety Report 13074393 (Version 1)
Quarter: 2016Q4

REPORT INFORMATION
  Report Type: Spontaneous
  Country: US (occurrence: US)
  Receive Date: 20161230
  Receipt Date: 20161230
  Transmission Date: 20170207
  Serious: No
  Sender: FDA-Public Use
  Company Number: US-ASTRAZENECA-2016SF34316

PATIENT
  Sex: Female

DRUGS (4)
  1. MTX [Concomitant]
     Active Substance: METHOTREXATE SODIUM
     Indication: RHEUMATOID ARTHRITIS
  2. LISINORIL 5MG [Suspect]
     Active Substance: LISINOPRIL
     Dosage: DOSE UNKNOWN
     Route: 048
  3. XELJANZ [Suspect]
     Active Substance: TOFACITINIB CITRATE
     Indication: RHEUMATOID ARTHRITIS
     Route: 048
     Dates: start: 20160614, end: 20160619
  4. SEROQUEL [Suspect]
     Active Substance: QUETIAPINE FUMARATE
     Dosage: DOSE UNKNOWN
     Route: 048

REACTIONS (3)
  - Skin lesion [Unknown]
  - Drug hypersensitivity [Recovered/Resolved]
  - Pain of skin [Unknown]
